FAERS Safety Report 4998792-6 (Version None)
Quarter: 2006Q2

REPORT INFORMATION
  Report Type: 
  Country: None (occurrence: None)
  Receive Date: 20060510
  Receipt Date: 20050414
  Transmission Date: 20061013
  Serious: Yes (Other)
  Sender: FDA-Public Use
  Company Number: US-MERCK-0504USA02867

PATIENT
  Age: 46 Year
  Sex: Male

DRUGS (1)
  1. VIOXX [Suspect]
     Route: 048

REACTIONS (14)
  - ARTHRALGIA [None]
  - BACK PAIN [None]
  - CARDIAC FAILURE [None]
  - CEREBROVASCULAR ACCIDENT [None]
  - CHEST PAIN [None]
  - FAECAL INCONTINENCE [None]
  - HEPATOCELLULAR DAMAGE [None]
  - MYOCARDIAL INFARCTION [None]
  - NECK PAIN [None]
  - RADICULOPATHY [None]
  - RENAL DISORDER [None]
  - THROMBOSIS [None]
  - ULCER [None]
  - URINARY INCONTINENCE [None]
